FAERS Safety Report 7620578-4 (Version None)
Quarter: 2011Q3

REPORT INFORMATION
  Report Type: 
  Country: None (occurrence: None)
  Receive Date: 20110719
  Receipt Date: 20110712
  Transmission Date: 20111222
  Serious: Yes (Hospitalization, Other)
  Sender: FDA-Public Use
  Company Number: JP-B.I. PHARMACEUTICALS,INC./RIDGEFIELD-2011-BP-15098NB

PATIENT
  Sex: Male
  Weight: 54.5 kg

DRUGS (7)
  1. BIOFERMIN [Concomitant]
     Indication: ENTEROCOLITIS
     Dosage: 3 G
     Route: 048
     Dates: start: 19900613
  2. LASIX [Concomitant]
     Indication: CARDIAC FAILURE CHRONIC
     Dosage: 20 MG
     Route: 048
  3. FAMOTIDINE [Concomitant]
     Indication: GASTRITIS
     Dosage: 20 MG
     Route: 048
  4. PRADAXA [Suspect]
     Indication: ATRIAL FIBRILLATION
     Dosage: 220 MG
     Route: 048
     Dates: start: 20110501
  5. ALLOZYM [Concomitant]
     Indication: HYPERURICAEMIA
     Dosage: 100 MG
     Route: 048
  6. ASPIRIN [Concomitant]
     Indication: ARTERIOSCLEROSIS CORONARY ARTERY
     Dosage: 100 MG
     Route: 048
  7. AMIODARONE HCL [Suspect]
     Indication: ATRIAL FIBRILLATION
     Dosage: 300 MG
     Route: 048
     Dates: start: 20110501

REACTIONS (4)
  - SEPSIS [None]
  - DISSEMINATED INTRAVASCULAR COAGULATION [None]
  - HEPATIC FUNCTION ABNORMAL [None]
  - PROTHROMBIN TIME PROLONGED [None]
